FAERS Safety Report 6166609-2 (Version None)
Quarter: 2009Q2

REPORT INFORMATION
  Report Type: 
  Country: None (occurrence: None)
  Receive Date: 20090424
  Receipt Date: 20080813
  Transmission Date: 20091009
  Serious: No
  Sender: FDA-Public Use
  Company Number: US-ASTRAZENECA-2008UW16179

PATIENT
  Age: 32 Year
  Sex: Female
  Weight: 54.4 kg

DRUGS (5)
  1. ZOMIG [Suspect]
     Indication: MIGRAINE
     Route: 048
     Dates: start: 20030101
  2. EFFEXOR [Concomitant]
  3. PREVACID [Concomitant]
  4. TOPROL-XL [Concomitant]
     Route: 048
  5. TRIPHASIL GENERIC [Concomitant]

REACTIONS (4)
  - FATIGUE [None]
  - ILL-DEFINED DISORDER [None]
  - MUSCLE TIGHTNESS [None]
  - MUSCULAR WEAKNESS [None]
